FAERS Safety Report 9186836 (Version 1)
Quarter: 2013Q1

REPORT INFORMATION
  Report Type: Spontaneous
  Country: CH (occurrence: CH)
  Receive Date: 20130325
  Receipt Date: 20130325
  Transmission Date: 20140127
  Serious: Yes (Other)
  Sender: FDA-Public Use
  Company Number: CH-JNJFOC-20130311732

PATIENT
  Sex: Female

DRUGS (3)
  1. XARELTO [Suspect]
     Indication: TENDON SHEATH LESION EXCISION
     Route: 065
  2. XARELTO [Suspect]
     Indication: TENDON SHEATH LESION EXCISION
     Route: 065
     Dates: start: 20130207, end: 20130213
  3. IBUPROFEN [Suspect]
     Indication: PRODUCT USED FOR UNKNOWN INDICATION
     Route: 065
     Dates: start: 20130207, end: 20130211

REACTIONS (2)
  - Renal failure [Unknown]
  - Off label use [Unknown]
